FAERS Safety Report 9345411 (Version 2)
Quarter: 2013Q2

REPORT INFORMATION
  Report Type: Spontaneous
  Country: GB (occurrence: GB)
  Receive Date: 20130613
  Receipt Date: 20130617
  Transmission Date: 20140414
  Serious: Yes (Other)
  Sender: FDA-Public Use
  Company Number: GB-ROCHE-1235588

PATIENT
  Age: 26 Year
  Sex: 0

DRUGS (30)
  1. NAPROXEN [Suspect]
     Indication: PAIN
     Route: 065
  2. NAPROXEN [Suspect]
     Indication: HYPERMOBILITY SYNDROME
  3. NAPROXEN [Suspect]
     Indication: OSTEOARTHRITIS
  4. NAPROXEN [Suspect]
     Indication: OSTEOPOROSIS
  5. NAPROXEN [Suspect]
     Indication: MYALGIA
  6. NAPROXEN [Suspect]
     Indication: RHEUMATOID ARTHRITIS
  7. CO-CODAMOL [Suspect]
     Indication: PAIN
     Route: 065
  8. CO-CODAMOL [Suspect]
     Indication: HYPERMOBILITY SYNDROME
  9. CO-CODAMOL [Suspect]
     Indication: OSTEOARTHRITIS
  10. CO-CODAMOL [Suspect]
     Indication: OSTEOPOROSIS
  11. CO-CODAMOL [Suspect]
     Indication: MYALGIA
  12. CO-CODAMOL [Suspect]
     Indication: RHEUMATOID ARTHRITIS
  13. DICLOFENAC [Suspect]
     Indication: PAIN
     Route: 065
  14. DICLOFENAC [Suspect]
     Indication: HYPERMOBILITY SYNDROME
  15. DICLOFENAC [Suspect]
     Indication: OSTEOARTHRITIS
  16. DICLOFENAC [Suspect]
     Indication: OSTEOPOROSIS
  17. DICLOFENAC [Suspect]
     Indication: MYALGIA
  18. DICLOFENAC [Suspect]
     Indication: RHEUMATOID ARTHRITIS
  19. LEFLUNOMIDE [Suspect]
     Indication: PAIN
     Route: 065
  20. LEFLUNOMIDE [Suspect]
     Indication: HYPERMOBILITY SYNDROME
  21. LEFLUNOMIDE [Suspect]
     Indication: OSTEOARTHRITIS
  22. LEFLUNOMIDE [Suspect]
     Indication: OSTEOPOROSIS
  23. LEFLUNOMIDE [Suspect]
     Indication: MYALGIA
  24. LEFLUNOMIDE [Suspect]
     Indication: RHEUMATOID ARTHRITIS
  25. TRAMADOL HCL [Suspect]
     Indication: PAIN
     Route: 065
  26. TRAMADOL HCL [Suspect]
     Indication: HYPERMOBILITY SYNDROME
  27. TRAMADOL HCL [Suspect]
     Indication: OSTEOARTHRITIS
  28. TRAMADOL HCL [Suspect]
     Indication: OSTEOPOROSIS
  29. TRAMADOL HCL [Suspect]
     Indication: MYALGIA
  30. TRAMADOL HCL [Suspect]
     Indication: RHEUMATOID ARTHRITIS

REACTIONS (2)
  - Drug ineffective [Unknown]
  - Suicidal ideation [Unknown]
